FAERS Safety Report 5273296-4 (Version None)
Quarter: 2007Q1

REPORT INFORMATION
  Report Type: 
  Country: None (occurrence: None)
  Receive Date: 20070319
  Receipt Date: 20070309
  Transmission Date: 20070707
  Serious: Yes (Other)
  Sender: FDA-Public Use
  Company Number: 07H-055-0312254-00

PATIENT
  Age: 65 Year
  Sex: Female

DRUGS (13)
  1. PRECEDEX [Suspect]
     Indication: DRUG USE FOR UNKNOWN INDICATION
     Dosage: SEE IMAGE
     Route: 042
     Dates: start: 20070225, end: 20070225
  2. PRECEDEX [Suspect]
     Indication: DRUG USE FOR UNKNOWN INDICATION
     Dosage: SEE IMAGE
     Route: 042
     Dates: start: 20070225, end: 20070225
  3. ACTRAPID [Concomitant]
  4. DIFLUCAN INFUSION (FLUCONAZOLE) [Concomitant]
  5. DOBUJECT INFUSION (DOBUTAMINE HYDROCHLORIDE) [Concomitant]
  6. FENTANYL INFUSION (FENTANYL) [Concomitant]
  7. FRAGMIN INFUSION (HEPARIN-FRACTION, SODIUM SALT) [Concomitant]
  8. FURESIS (FUROSEMIDE) (FUROSEMIDE) [Concomitant]
  9. MERONEM (MEROPENEM) [Concomitant]
  10. METRONIDAZOLE INF (METRONIDAZOLE) [Concomitant]
  11. NORADRENALINA INFUSION [Concomitant]
  12. SOLU-MEDROL [Concomitant]
  13. PANTOPRAZOLE SODIUM [Concomitant]

REACTIONS (2)
  - CARDIAC INDEX DECREASED [None]
  - HYPOTENSION [None]
